FAERS Safety Report 25635007 (Version 3)
Quarter: 2025Q3

REPORT INFORMATION
  Report Type: Spontaneous
  Country: RU (occurrence: RU)
  Receive Date: 20250801
  Receipt Date: 20250821
  Transmission Date: 20251020
  Serious: No
  Sender: EISAI
  Company Number: RU-Eisai-EC-2025-193310

PATIENT
  Age: 53 Year
  Sex: Female
  Weight: 79 kg

DRUGS (8)
  1. LENVIMA [Suspect]
     Active Substance: LENVATINIB
     Indication: Hepatocellular carcinoma
     Dates: start: 202405, end: 202412
  2. LEVOTHYROXINE [Concomitant]
     Active Substance: LEVOTHYROXINE
     Indication: Autoimmune thyroiditis
     Dates: start: 202306
  3. LEVOTHYROXINE [Concomitant]
     Active Substance: LEVOTHYROXINE
     Dates: start: 202405
  4. LOPERAMIDE [Concomitant]
     Active Substance: LOPERAMIDE
     Indication: Diarrhoea
     Dates: start: 202405, end: 202412
  5. OMEPRAZOLE [Concomitant]
     Active Substance: OMEPRAZOLE
     Indication: Diarrhoea
     Dates: start: 202405, end: 202412
  6. BIFIDOBACTERIUM BIFIDUM [Concomitant]
     Active Substance: BIFIDOBACTERIUM BIFIDUM
     Indication: Diarrhoea
     Dates: start: 202405, end: 202412
  7. BISOPROLOL [Concomitant]
     Active Substance: BISOPROLOL
     Indication: Hypertension
     Dates: end: 202412
  8. BISOPROLOL [Concomitant]
     Active Substance: BISOPROLOL
     Indication: Arrhythmia

REACTIONS (9)
  - Decreased appetite [Recovering/Resolving]
  - Arthralgia [Recovering/Resolving]
  - Weight decreased [Recovering/Resolving]
  - Hypertension [Recovering/Resolving]
  - Muscle spasms [Recovering/Resolving]
  - Arrhythmia [Recovering/Resolving]
  - Insomnia [Recovering/Resolving]
  - Abdominal pain [Recovering/Resolving]
  - Diarrhoea [Recovering/Resolving]

NARRATIVE: CASE EVENT DATE: 20240501
